FAERS Safety Report 7645166-5 (Version None)
Quarter: 2011Q3

REPORT INFORMATION
  Report Type: 
  Country: None (occurrence: None)
  Receive Date: 20110729
  Receipt Date: 20110726
  Transmission Date: 20111222
  Serious: Yes (Hospitalization, Other)
  Sender: FDA-Public Use
  Company Number: US-AMGEN-USASP2011035536

PATIENT
  Age: 76 Year
  Sex: Female

DRUGS (15)
  1. DOXORUBICIN HCL [Concomitant]
     Dosage: UNK
     Dates: start: 20100801
  2. DEXAMETHASONE [Concomitant]
     Dosage: UNK
     Dates: start: 20100801
  3. NPLATE [Suspect]
     Indication: THROMBOCYTOPENIA
     Dosage: 60 A?G, ONE TIME DOSE
     Dates: start: 20110128, end: 20110128
  4. METOPROLOL TARTRATE [Concomitant]
     Dosage: 25 MG, BID
     Route: 048
  5. PRILOSEC [Concomitant]
     Dosage: 20 MG, QD
  6. VINCRISTINE [Concomitant]
     Dosage: UNK
     Dates: start: 20100801
  7. ALLOPURINOL [Concomitant]
     Dosage: 300 MG, QD
     Route: 048
  8. ZYPREXA [Concomitant]
     Dosage: 5 MG, QD
     Route: 048
  9. PHENERGAN                          /00033001/ [Concomitant]
     Dosage: 25 MG, PRN
     Route: 048
  10. VITAMIN B12                        /00056201/ [Concomitant]
     Dosage: UNK UNK, QD
  11. METHOTREXATE [Concomitant]
     Dosage: UNK
     Dates: start: 20100801
  12. VALTREX [Concomitant]
     Dosage: 500 MG, QD
  13. NEUPOGEN [Suspect]
     Indication: CHEMOTHERAPY
     Dosage: UNK
     Dates: start: 20100801
  14. CYCLOPHOSPHAMIDE [Concomitant]
     Dosage: UNK
     Dates: start: 20100801
  15. CYTARABINE [Concomitant]
     Dosage: UNK
     Dates: start: 20100801

REACTIONS (4)
  - OEDEMA [None]
  - INFECTION [None]
  - CONTUSION [None]
  - CACHEXIA [None]
